FAERS Safety Report 8448927-8 (Version None)
Quarter: 2012Q2

REPORT INFORMATION
  Report Type: 
  Country: None (occurrence: None)
  Receive Date: 20120619
  Receipt Date: 20120608
  Transmission Date: 20120825
  Serious: Yes (Hospitalization)
  Sender: FDA-Public Use
  Company Number: FR-GLAXOSMITHKLINE-B0806646A

PATIENT
  Sex: Female

DRUGS (6)
  1. CORVASAL [Concomitant]
     Indication: PRODUCT USED FOR UNKNOWN INDICATION
     Dosage: 1UNIT PER DAY
     Route: 048
  2. COUMADIN [Suspect]
     Indication: PRODUCT USED FOR UNKNOWN INDICATION
     Dosage: 2MG TWICE PER DAY
     Route: 048
     Dates: start: 20120503, end: 20120505
  3. ARIXTRA [Suspect]
     Indication: THROMBOPHLEBITIS
     Dosage: 10MG PER DAY
     Route: 058
     Dates: start: 20120425, end: 20120502
  4. ATACAND [Concomitant]
     Indication: HYPERTENSION
     Dosage: 1UNIT PER DAY
     Route: 048
  5. LOVENOX [Suspect]
     Dosage: .4ML TWICE PER DAY
     Route: 058
     Dates: start: 20120511, end: 20120512
  6. HYPERIUM [Concomitant]
     Indication: HYPERTENSION
     Dosage: 1UNIT PER DAY
     Route: 048

REACTIONS (9)
  - DYSPNOEA [None]
  - ABDOMINAL WALL HAEMATOMA [None]
  - SHOCK HAEMORRHAGIC [None]
  - HYPOTENSION [None]
  - GASTRIC ULCER [None]
  - MELAENA [None]
  - ANAEMIA [None]
  - HAEMATEMESIS [None]
  - RECTAL HAEMORRHAGE [None]
